FAERS Safety Report 16205699 (Version 1)
Quarter: 2019Q2

REPORT INFORMATION
  Report Type: Spontaneous
  Country: US (occurrence: US)
  Receive Date: 20190417
  Receipt Date: 20190417
  Transmission Date: 20190711
  Serious: Yes (Other)
  Sender: FDA-Public Use
  Company Number: US-TEVA-2019-US-1038544

PATIENT
  Sex: Female

DRUGS (4)
  1. DILAUDID [Concomitant]
     Active Substance: HYDROMORPHONE HYDROCHLORIDE
  2. DOLOPHINE [Concomitant]
     Active Substance: METHADONE HYDROCHLORIDE
  3. FENTORA [Suspect]
     Active Substance: FENTANYL CITRATE
     Indication: SPINAL CORD NEOPLASM
  4. FENTORA [Suspect]
     Active Substance: FENTANYL CITRATE
     Indication: CANCER PAIN

REACTIONS (1)
  - Cancer pain [Unknown]
